FAERS Safety Report 19877541 (Version 22)
Quarter: 2022Q4

REPORT INFORMATION
  Report Type: Spontaneous
  Country: PL (occurrence: PL)
  Receive Date: 20210923
  Receipt Date: 20221209
  Transmission Date: 20230113
  Serious: Yes (Hospitalization, Other)
  Sender: FDA-Public Use
  Company Number: PL-NOVARTISPH-NVSC2021PL213803

PATIENT
  Age: 60 Year
  Sex: Male

DRUGS (66)
  1. RAMIPRIL [Suspect]
     Active Substance: RAMIPRIL
     Indication: Cardiac failure chronic
     Dosage: 3 G, QD
     Route: 065
  2. RAMIPRIL [Suspect]
     Active Substance: RAMIPRIL
     Dosage: 20 MG
     Route: 065
  3. RAMIPRIL [Suspect]
     Active Substance: RAMIPRIL
     Dosage: 3 MG, QD
     Route: 065
  4. RAMIPRIL [Suspect]
     Active Substance: RAMIPRIL
     Dosage: 2.5 MG, QD
     Route: 065
  5. RAMIPRIL [Suspect]
     Active Substance: RAMIPRIL
     Dosage: 20 MG, QD
     Route: 065
  6. RAMIPRIL [Suspect]
     Active Substance: RAMIPRIL
     Dosage: UNK (UNK2.5 G DAILY / 2.5 MG DAILY / 20 MG DAILY)
     Route: 065
  7. RAMIPRIL [Suspect]
     Active Substance: RAMIPRIL
     Dosage: 2.5 MG, QD
     Route: 065
  8. RAMIPRIL [Suspect]
     Active Substance: RAMIPRIL
     Dosage: 20 MG, QD
     Route: 065
  9. RAMIPRIL [Suspect]
     Active Substance: RAMIPRIL
     Dosage: 2.5 G, QD
     Route: 065
  10. RAMIPRIL [Suspect]
     Active Substance: RAMIPRIL
     Dosage: 3 MG, QD
     Route: 065
  11. CLOPIDOGREL [Suspect]
     Active Substance: CLOPIDOGREL BISULFATE
     Indication: Cardiac failure chronic
     Dosage: 75 MG, QD
     Route: 065
  12. BISOPROLOL [Suspect]
     Active Substance: BISOPROLOL
     Indication: Cardiac failure chronic
     Dosage: 2.5 MG, QD (BISOPROLOL SALT NOT SPECIFIED)
     Route: 065
  13. BISOPROLOL [Suspect]
     Active Substance: BISOPROLOL
     Dosage: 3 MG, QD
     Route: 065
  14. BISOPROLOL [Suspect]
     Active Substance: BISOPROLOL
     Dosage: UNK
     Route: 065
  15. BISOPROLOL [Suspect]
     Active Substance: BISOPROLOL
     Dosage: 3 MG, QD
     Route: 065
  16. BISOPROLOL [Suspect]
     Active Substance: BISOPROLOL
     Dosage: 2.5 MG, QD
     Route: 065
  17. ROSUVASTATIN CALCIUM [Suspect]
     Active Substance: ROSUVASTATIN CALCIUM
     Indication: Cardiac failure chronic
     Dosage: 40 MG, QD
     Route: 048
  18. ROSUVASTATIN CALCIUM [Suspect]
     Active Substance: ROSUVASTATIN CALCIUM
     Dosage: 40 MG, QD
     Route: 065
  19. ROSUVASTATIN [Suspect]
     Active Substance: ROSUVASTATIN
     Indication: Cardiac failure chronic
     Dosage: 40 MG, QD
     Route: 048
  20. BISOPROLOL FUMARATE [Suspect]
     Active Substance: BISOPROLOL FUMARATE
     Indication: Cardiac failure chronic
     Dosage: 2.5 MG, QD
     Route: 065
  21. BISOPROLOL FUMARATE [Suspect]
     Active Substance: BISOPROLOL FUMARATE
     Dosage: 3 MG, Q24H
     Route: 065
  22. TORSEMIDE [Suspect]
     Active Substance: TORSEMIDE
     Indication: Cardiac failure chronic
     Dosage: 10 MG
     Route: 065
  23. OMEPRAZOLE [Suspect]
     Active Substance: OMEPRAZOLE
     Indication: Cardiac failure chronic
     Dosage: UNK
     Route: 065
  24. PANTOPRAZOLE [Suspect]
     Active Substance: PANTOPRAZOLE
     Indication: Cardiac failure chronic
     Dosage: 75 MG, QD
     Route: 065
  25. PANTOPRAZOLE [Suspect]
     Active Substance: PANTOPRAZOLE
     Dosage: 10 MG
     Route: 065
  26. VALSARTAN [Suspect]
     Active Substance: VALSARTAN
     Indication: Product used for unknown indication
     Dosage: UNK
     Route: 065
  27. ASPIRIN [Suspect]
     Active Substance: ASPIRIN
     Indication: Cardiac failure chronic
     Dosage: 75 MG, QD
     Route: 065
  28. PANTOPRAZOLE SODIUM [Suspect]
     Active Substance: PANTOPRAZOLE SODIUM
     Indication: Cardiac failure chronic
     Dosage: 10 MG
     Route: 065
  29. PANTOPRAZOLE SODIUM [Suspect]
     Active Substance: PANTOPRAZOLE SODIUM
     Dosage: 75 MG
     Route: 065
  30. CLOPIDOGREL BESILATE [Suspect]
     Active Substance: CLOPIDOGREL BESILATE
     Indication: Cardiac failure chronic
     Dosage: 75 MG, QD
     Route: 065
  31. APIXABAN [Suspect]
     Active Substance: APIXABAN
     Indication: Cardiac failure chronic
     Dosage: 2.5 MG, Q24H
     Route: 065
  32. APIXABAN [Suspect]
     Active Substance: APIXABAN
     Dosage: 2.5 MG, Q12H
     Route: 065
  33. APIXABAN [Suspect]
     Active Substance: APIXABAN
     Dosage: 3 MG, Q24H
     Route: 065
  34. APIXABAN [Suspect]
     Active Substance: APIXABAN
     Dosage: 2.5 MG, Q12H
     Route: 065
  35. APIXABAN [Suspect]
     Active Substance: APIXABAN
     Dosage: 2.5 MG, Q12H
     Route: 065
  36. APIXABAN [Suspect]
     Active Substance: APIXABAN
     Dosage: 5 MG, Q24H (TABLET)
     Route: 065
  37. APIXABAN [Suspect]
     Active Substance: APIXABAN
     Dosage: 2.5 MG, Q12H
     Route: 065
  38. APIXABAN [Suspect]
     Active Substance: APIXABAN
     Dosage: 5 MG, Q24H
     Route: 065
  39. APIXABAN [Suspect]
     Active Substance: APIXABAN
     Dosage: 3 MG, Q12H
     Route: 065
  40. APIXABAN [Suspect]
     Active Substance: APIXABAN
     Dosage: 5 MG, Q24H
     Route: 065
  41. APIXABAN [Suspect]
     Active Substance: APIXABAN
     Dosage: 2.5 MG, Q12H
     Route: 065
  42. APIXABAN [Suspect]
     Active Substance: APIXABAN
     Dosage: 5 MG, Q24H (EVERY 1 DAY)
     Route: 065
  43. APIXABAN [Suspect]
     Active Substance: APIXABAN
     Dosage: 2.5 MG, Q24H
     Route: 065
  44. APIXABAN [Suspect]
     Active Substance: APIXABAN
     Dosage: 3 MG, Q12H
     Route: 065
  45. APIXABAN [Suspect]
     Active Substance: APIXABAN
     Dosage: 5 MG, Q24H
     Route: 065
  46. APIXABAN [Suspect]
     Active Substance: APIXABAN
     Dosage: 2.5 MG, BID
     Route: 065
  47. APIXABAN [Suspect]
     Active Substance: APIXABAN
     Dosage: 2.5 MG, QD
     Route: 065
  48. APIXABAN [Suspect]
     Active Substance: APIXABAN
     Dosage: 3 MG, BID
     Route: 065
  49. APIXABAN [Suspect]
     Active Substance: APIXABAN
     Dosage: 5 MG, QD
     Route: 065
  50. APIXABAN [Suspect]
     Active Substance: APIXABAN
     Dosage: 3.5 MG, BID
     Route: 065
  51. APIXABAN [Suspect]
     Active Substance: APIXABAN
     Indication: Cardiac failure chronic
     Dosage: 7 MG, QD (3.5 MG, BID)
     Route: 065
  52. APIXABAN [Suspect]
     Active Substance: APIXABAN
     Dosage: 5 MG, QD
     Route: 065
  53. APIXABAN [Suspect]
     Active Substance: APIXABAN
     Dosage: 6 MG, QD (3 MG, BID)
     Route: 065
  54. APIXABAN [Suspect]
     Active Substance: APIXABAN
     Dosage: 10 MG, QD (5 MG, BID)
     Route: 065
  55. APIXABAN [Suspect]
     Active Substance: APIXABAN
     Dosage: 2.5 MG, QD
     Route: 065
  56. APIXABAN [Suspect]
     Active Substance: APIXABAN
     Dosage: 5 MG, QD (2.5 MG, BID)
     Route: 065
  57. APIXABAN [Suspect]
     Active Substance: APIXABAN
     Dosage: 3 MG
     Route: 065
  58. APIXABAN [Suspect]
     Active Substance: APIXABAN
     Dosage: 12 MG, QD (6 MG, BID)
     Route: 065
  59. ROSUVASTATIN [Suspect]
     Active Substance: ROSUVASTATIN
     Indication: Cardiac failure chronic
     Dosage: 40 MG, QD
     Route: 048
  60. CLOPIDOGREL [Suspect]
     Active Substance: CLOPIDOGREL BISULFATE
     Indication: Cardiac failure chronic
     Dosage: 75 MG, QD
     Route: 065
  61. FUROSEMIDE [Suspect]
     Active Substance: FUROSEMIDE
     Indication: Cardiac failure chronic
     Dosage: UNK (20-40 MG)
     Route: 065
  62. CLOPIDOGREL BISULFATE [Suspect]
     Active Substance: CLOPIDOGREL BISULFATE
     Indication: Cardiac failure chronic
     Dosage: 75 MG, Q24H
     Route: 065
  63. SACUBITRIL [Suspect]
     Active Substance: SACUBITRIL
     Indication: Product used for unknown indication
     Dosage: UNK
     Route: 065
  64. CLOPIDOGREL BISULFATE [Suspect]
     Active Substance: CLOPIDOGREL BISULFATE
     Indication: Cardiac failure chronic
     Dosage: 75 MG, QD
     Route: 065
  65. ENTRESTO [Concomitant]
     Active Substance: SACUBITRIL\VALSARTAN
     Indication: Product used for unknown indication
     Dosage: UNK (24/26) MG
     Route: 065
  66. ENTRESTO [Concomitant]
     Active Substance: SACUBITRIL\VALSARTAN
     Dosage: UNK (49/51 MG)
     Route: 065

REACTIONS (9)
  - Cardiac failure [Recovering/Resolving]
  - Myocardial infarction [Unknown]
  - Atrial fibrillation [Unknown]
  - Cardiac failure chronic [Unknown]
  - Drug abuse [Unknown]
  - Dyslipidaemia [Unknown]
  - Intentional product use issue [Unknown]
  - Product use in unapproved indication [Unknown]
  - Off label use [Unknown]

NARRATIVE: CASE EVENT DATE: 20201001
